FAERS Safety Report 16441870 (Version 1)
Quarter: 2019Q2

REPORT INFORMATION
  Report Type: Report from Study
  Country: None (occurrence: US)
  Receive Date: 20190617
  Receipt Date: 20190617
  Transmission Date: 20190711
  Serious: No
  Sender: FDA-Public Use
  Company Number: US-US WORLDMEDS, LLC-USW201808-001303

PATIENT
  Age: 51 Year
  Sex: Male
  Weight: 85 kg

DRUGS (8)
  1. CARBIDOPA/LEVODOPA [Concomitant]
     Active Substance: CARBIDOPA\LEVODOPA
  2. PROGLYCEM [Concomitant]
     Active Substance: DIAZOXIDE
  3. SCOPOLAMINE [Concomitant]
     Active Substance: SCOPOLAMINE
  4. NEUPRO [Concomitant]
     Active Substance: ROTIGOTINE
  5. CLONAZEPAM. [Concomitant]
     Active Substance: CLONAZEPAM
  6. PAROXETINE. [Concomitant]
     Active Substance: PAROXETINE
  7. APOKYN [Suspect]
     Active Substance: APOMORPHINE HYDROCHLORIDE
     Indication: PARKINSON^S DISEASE
     Route: 058
     Dates: start: 20170818
  8. POLYETHYLENE GLYCOL [Concomitant]
     Active Substance: POLYETHYLENE GLYCOLS

REACTIONS (3)
  - Balance disorder [Unknown]
  - Dizziness [Unknown]
  - Fall [Unknown]

NARRATIVE: CASE EVENT DATE: 20180828
